FAERS Safety Report 14474961 (Version 5)
Quarter: 2018Q2

REPORT INFORMATION
  Report Type: Spontaneous
  Country: CA (occurrence: CA)
  Receive Date: 20180201
  Receipt Date: 20180419
  Transmission Date: 20180711
  Serious: Yes (Life-Threatening, Hospitalization, Disabling, Other)
  Sender: FDA-Public Use
  Company Number: CA-PFIZER INC-2018045009

PATIENT
  Age: 44 Year
  Sex: Male

DRUGS (2)
  1. ADVIL LIQUI-GELS [Suspect]
     Active Substance: IBUPROFEN
     Indication: HEADACHE
     Dosage: 400 MG, EVERY 2 DAYS
     Route: 048
     Dates: start: 201708, end: 20180108
  2. ADVIL LIQUI-GELS [Suspect]
     Active Substance: IBUPROFEN
     Indication: MYALGIA

REACTIONS (6)
  - Penile pain [Unknown]
  - Dermatitis bullous [Recovered/Resolved]
  - Stevens-Johnson syndrome [Recovering/Resolving]
  - Anxiety [Unknown]
  - Depression [Unknown]
  - Obsessive-compulsive disorder [Unknown]

NARRATIVE: CASE EVENT DATE: 20170807
